FAERS Safety Report 22369081 (Version 11)
Quarter: 2024Q2

REPORT INFORMATION
  Report Type: Spontaneous
  Country: CA (occurrence: CA)
  Receive Date: 20230525
  Receipt Date: 20240617
  Transmission Date: 20240716
  Serious: Yes (Other)
  Sender: FDA-Public Use
  Company Number: CA-CELLTRION INC.-2023CA006743

PATIENT

DRUGS (17)
  1. INFLECTRA [Suspect]
     Active Substance: INFLIXIMAB-DYYB
     Indication: Colitis ulcerative
     Dosage: 300 MG, INDUCTION WEEK 0, 2, 6 THEN MAINTENANCE EVERY 8 WEEKS
     Route: 042
     Dates: start: 20230210
  2. INFLECTRA [Suspect]
     Active Substance: INFLIXIMAB-DYYB
     Dosage: 300 MG, INDUCTION WEEK 0, 2, 6 THEN MAINTENANCE EVERY 8 WEEKS
     Route: 042
     Dates: start: 20230224
  3. INFLECTRA [Suspect]
     Active Substance: INFLIXIMAB-DYYB
     Dosage: 300 MG, INDUCTION WEEK 0, 2, 6 THEN MAINTENANCE EVERY 8 WEEKS
     Route: 042
     Dates: start: 20230324
  4. INFLECTRA [Suspect]
     Active Substance: INFLIXIMAB-DYYB
     Dosage: 300 MG, INDUCTION WEEK 0, 2, 6 THEN MAINTENANCE EVERY 8 WEEKS
     Route: 042
     Dates: start: 20230324
  5. INFLECTRA [Suspect]
     Active Substance: INFLIXIMAB-DYYB
     Dosage: 370 MG, AFTER 8 WEEKS (PRESCRIBED 300 MG)
     Route: 042
     Dates: start: 20230517
  6. INFLECTRA [Suspect]
     Active Substance: INFLIXIMAB-DYYB
     Dosage: 300 MG, EVERY 6 WEEKS (SUPPOSED TO RECEIVE 5 MG/KG)
     Route: 042
     Dates: start: 20230704
  7. INFLECTRA [Suspect]
     Active Substance: INFLIXIMAB-DYYB
     Dosage: 5 MG/KG, EVERY 6 WEEK
     Route: 042
     Dates: start: 20230704
  8. INFLECTRA [Suspect]
     Active Substance: INFLIXIMAB-DYYB
     Dosage: 5 MG/KG, EVERY 6 WEEK
     Route: 042
     Dates: start: 20230814
  9. INFLECTRA [Suspect]
     Active Substance: INFLIXIMAB-DYYB
     Dosage: 5 MG/KG (350 MG), EVERY 6 WEEKS
     Route: 042
     Dates: start: 20230925
  10. INFLECTRA [Suspect]
     Active Substance: INFLIXIMAB-DYYB
     Dosage: 7500 UG/KG (503 MG), EVERY 6 WEEKS
     Route: 042
     Dates: start: 20231106
  11. INFLECTRA [Suspect]
     Active Substance: INFLIXIMAB-DYYB
     Dosage: 7500 UG/KG (500 MG), EVERY 6 WEEKS
     Route: 042
     Dates: start: 20231218
  12. INFLECTRA [Suspect]
     Active Substance: INFLIXIMAB-DYYB
     Dosage: 7500 UG/KG (500 MG), EVERY 6 WEEKS
     Route: 042
     Dates: start: 20240129
  13. INFLECTRA [Suspect]
     Active Substance: INFLIXIMAB-DYYB
     Dosage: 7500 UG/KG (500MG), EVERY 6 WEEKS
     Route: 042
     Dates: start: 20240311
  14. INFLECTRA [Suspect]
     Active Substance: INFLIXIMAB-DYYB
     Dosage: 7500 UG/KG (500MG), EVERY 4 WEEKS
     Route: 042
     Dates: start: 20240311
  15. INFLECTRA [Suspect]
     Active Substance: INFLIXIMAB-DYYB
     Dosage: 7.5 MG/KG (465 MG), AFTER 9 WEEKS AND 1 DAY, PRESCRIBED EVERY 4 WEEKS
     Route: 042
     Dates: start: 20240514
  16. INFLECTRA [Suspect]
     Active Substance: INFLIXIMAB-DYYB
     Dosage: 7500 UG/KG (465 MG), AFTER 3 WEEKS AND 6 DAYS, PRESCRIBED EVERY 4 WEEKS
     Route: 042
     Dates: start: 20240610
  17. PREDNISONE [Concomitant]
     Active Substance: PREDNISONE
     Dosage: 40 MG, DAILY (DECREASING DOSE)
     Dates: start: 20230511

REACTIONS (22)
  - Pain [Recovering/Resolving]
  - Fatigue [Not Recovered/Not Resolved]
  - Knee arthroplasty [Recovering/Resolving]
  - Therapeutic response shortened [Unknown]
  - Condition aggravated [Recovered/Resolved]
  - C-reactive protein increased [Not Recovered/Not Resolved]
  - Red blood cell sedimentation rate increased [Unknown]
  - Nasopharyngitis [Not Recovered/Not Resolved]
  - Productive cough [Not Recovered/Not Resolved]
  - Headache [Not Recovered/Not Resolved]
  - Pyrexia [Recovered/Resolved]
  - Laryngitis [Recovering/Resolving]
  - Bronchitis [Recovering/Resolving]
  - Influenza like illness [Recovering/Resolving]
  - Sinusitis [Recovering/Resolving]
  - Pancreatic mass [Not Recovered/Not Resolved]
  - Arthralgia [Not Recovered/Not Resolved]
  - Off label use [Unknown]
  - Off label use [Unknown]
  - Off label use [Unknown]
  - Intentional product use issue [Unknown]
  - Incorrect dose administered [Unknown]

NARRATIVE: CASE EVENT DATE: 20230101
